FAERS Safety Report 23529083 (Version 4)
Quarter: 2024Q4

REPORT INFORMATION
  Report Type: Report from Study
  Country: US (occurrence: US)
  Receive Date: 20240216
  Receipt Date: 20241105
  Transmission Date: 20250115
  Serious: Yes (Hospitalization, Other)
  Sender: ABBVIE
  Company Number: US-ABBVIE-5637635

PATIENT
  Age: 74 Year
  Sex: Female

DRUGS (2)
  1. SKYRIZI [Suspect]
     Active Substance: RISANKIZUMAB-RZAA
     Indication: Psoriasis
     Route: 058
     Dates: start: 202402
  2. SKYRIZI [Suspect]
     Active Substance: RISANKIZUMAB-RZAA
     Route: 058
     Dates: start: 20230208, end: 202312

REACTIONS (9)
  - Illness [Recovering/Resolving]
  - Chest pain [Unknown]
  - Loss of consciousness [Unknown]
  - Rotator cuff syndrome [Recovering/Resolving]
  - Hypoaesthesia [Recovering/Resolving]
  - Carpal tunnel syndrome [Unknown]
  - Musculoskeletal disorder [Unknown]
  - Nerve compression [Recovering/Resolving]
  - Joint range of motion decreased [Not Recovered/Not Resolved]

NARRATIVE: CASE EVENT DATE: 20231201
